FAERS Safety Report 7585166-7 (Version None)
Quarter: 2011Q3

REPORT INFORMATION
  Report Type: 
  Country: None (occurrence: None)
  Receive Date: 20110701
  Receipt Date: 20110622
  Transmission Date: 20111222
  Serious: Yes (Hospitalization)
  Sender: FDA-Public Use
  Company Number: US-BIOGENIDEC-2011BI010457

PATIENT
  Age: 54 Year
  Sex: Female

DRUGS (3)
  1. AVONEX [Suspect]
     Route: 030
  2. AVONEX [Suspect]
     Indication: MULTIPLE SCLEROSIS
     Route: 030
     Dates: start: 20091001
  3. AVONEX [Suspect]
     Route: 030
     Dates: start: 20091001

REACTIONS (10)
  - BACK PAIN [None]
  - PYREXIA [None]
  - DEVICE RELATED SEPSIS [None]
  - ANAEMIA [None]
  - COMPUTERISED TOMOGRAM ABNORMAL [None]
  - VOMITING [None]
  - NUCLEAR MAGNETIC RESONANCE IMAGING ABNORMAL [None]
  - BLOOD TEST ABNORMAL [None]
  - RENAL IMPAIRMENT [None]
  - STREPTOCOCCAL SEPSIS [None]
